FAERS Safety Report 21203976 (Version 1)
Quarter: 2022Q3

REPORT INFORMATION
  Report Type: Report from Study
  Country: US (occurrence: US)
  Receive Date: 20220811
  Receipt Date: 20220811
  Transmission Date: 20221027
  Serious: No
  Sender: FDA-Public Use
  Company Number: US-ACADIA PHARMACEUTICALS INC.-ACA-2022-PIM-002425

PATIENT
  Sex: Male

DRUGS (10)
  1. NUPLAZID [Suspect]
     Active Substance: PIMAVANSERIN TARTRATE
     Indication: Parkinson^s disease psychosis
     Dosage: 34 MILLIGRAM, QD
     Route: 065
  2. CARBIDOPA\LEVODOPA [Concomitant]
     Active Substance: CARBIDOPA\LEVODOPA
  3. LASIX [Concomitant]
     Active Substance: FUROSEMIDE
  4. POTASSIUM [Concomitant]
     Active Substance: POTASSIUM
  5. FINASTERIDE [Concomitant]
     Active Substance: FINASTERIDE
  6. CHLORTHALIDONE [Concomitant]
     Active Substance: CHLORTHALIDONE
  7. ROPINIROLE [Concomitant]
     Active Substance: ROPINIROLE
  8. VITAMIN D3 [Concomitant]
     Active Substance: CHOLECALCIFEROL
  9. VITAMIN B12 [Concomitant]
     Active Substance: CYANOCOBALAMIN
  10. FOLATE SODIUM [Concomitant]
     Active Substance: FOLATE SODIUM

REACTIONS (3)
  - Asthenia [Not Recovered/Not Resolved]
  - Malaise [Not Recovered/Not Resolved]
  - Hallucination [Not Recovered/Not Resolved]
